FAERS Safety Report 5722768-4 (Version None)
Quarter: 2008Q2

REPORT INFORMATION
  Report Type: 
  Country: None (occurrence: None)
  Receive Date: 20080429
  Receipt Date: 20071214
  Transmission Date: 20081010
  Serious: No
  Sender: FDA-Public Use
  Company Number: US-ASTRAZENECA-2008UW00180

PATIENT
  Age: 30688 Day
  Sex: Female

DRUGS (1)
  1. NEXIUM [Suspect]
     Indication: EROSIVE OESOPHAGITIS
     Dosage: BEFORE BREAKFAST
     Route: 048
     Dates: start: 20071129

REACTIONS (3)
  - DIPLOPIA [None]
  - PAIN [None]
  - PALPITATIONS [None]
